FAERS Safety Report 23530236 (Version 1)
Quarter: 2024Q1

REPORT INFORMATION
  Report Type: Other
  Country: BR (occurrence: None)
  Receive Date: 20240216
  Receipt Date: 20240216
  Transmission Date: 20240410
  Serious: Yes (Other)
  Sender: FDA-Public Use
  Company Number: BR-ROCHE-3505426

PATIENT

DRUGS (4)
  1. BEVACIZUMAB [Suspect]
     Active Substance: BEVACIZUMAB
     Indication: Neovascular age-related macular degeneration
     Dosage: 1.25 MG/0.1 ML
     Route: 050
  2. RANIBIZUMAB [Suspect]
     Active Substance: RANIBIZUMAB
     Indication: Neovascular age-related macular degeneration
     Dosage: 0.5 MG/0.05 ML
     Route: 050
  3. AFLIBERCEPT [Suspect]
     Active Substance: AFLIBERCEPT
     Indication: Neovascular age-related macular degeneration
     Dosage: 2.0 MG/0.05 ML
     Route: 050
  4. ZIV-AFLIBERCEPT [Suspect]
     Active Substance: ZIV-AFLIBERCEPT
     Indication: Neovascular age-related macular degeneration
     Dosage: 0.07 ML OR 0.08 ML OF 100 MG/4 ML
     Route: 050

REACTIONS (4)
  - Macular degeneration [Unknown]
  - Retinal haemorrhage [Unknown]
  - Off label use [Unknown]
  - Off label use [Unknown]
